FAERS Safety Report 18002414 (Version 1)
Quarter: 2020Q3

REPORT INFORMATION
  Report Type: Spontaneous
  Country: US (occurrence: US)
  Receive Date: 20200709
  Receipt Date: 20200709
  Transmission Date: 20201103
  Serious: Yes (Hospitalization)
  Sender: FDA-Public Use
  Company Number: US-FRESENIUS MEDICAL CARE RENAL THERAPIES GROUP-FMC-2007-000764

PATIENT
  Age: 51 Year
  Sex: Female
  Weight: 46.5 kg

DRUGS (18)
  1. TRAZODONE [Concomitant]
     Active Substance: TRAZODONE HYDROCHLORIDE
  2. CEFADROXIL. [Concomitant]
     Active Substance: CEFADROXIL
  3. GABAPENTIN. [Concomitant]
     Active Substance: GABAPENTIN
  4. DELFLEX WITH DEXTROSE 1.5% LOW MAGNESIUM LOW CALCIUM [Suspect]
     Active Substance: CALCIUM CHLORIDE\DEXTROSE\MAGNESIUM CHLORIDE\SODIUM CHLORIDE\SODIUM LACTATE
     Indication: END STAGE RENAL DISEASE
     Dosage: FILL VOLUME = 1900 ML, 5 EXCHANGES, LAST FILL = 500ML, NO DAYTIME EXCHANGE, DWELL TIME = 1.0 HOUR AN
     Route: 033
  5. ZIMSTAT [Concomitant]
     Active Substance: SIMVASTATIN
  6. DELFLEX WITH DEXTROSE 2.5% LOW MAGNESIUM LOW CALCIUM [Suspect]
     Active Substance: CALCIUM CHLORIDE\DEXTROSE\MAGNESIUM CHLORIDE\SODIUM CHLORIDE\SODIUM LACTATE
     Indication: END STAGE RENAL DISEASE
     Dosage: FILL VOLUME = 1900 ML, 5 EXCHANGES, LAST FILL = 500ML, NO DAYTIME EXCHANGE, DWELL TIME = 1.0 HOUR AN
     Route: 033
  7. MIRCERA [Concomitant]
     Active Substance: METHOXY POLYETHYLENE GLYCOL-EPOETIN BETA
  8. DELFLEX WITH DEXTROSE 4.25% LOW MAGNESIUM LOW CALCIUM [Suspect]
     Active Substance: CALCIUM CHLORIDE\DEXTROSE\MAGNESIUM CHLORIDE\SODIUM CHLORIDE\SODIUM LACTATE
     Indication: END STAGE RENAL DISEASE
     Dosage: FILL VOLUME = 1900 ML, 5 EXCHANGES, LAST FILL = 500ML, NO DAYTIME EXCHANGE, DWELL TIME = 1.0 HOUR AN
     Route: 033
  9. VITAMIN D3 [Concomitant]
     Active Substance: CHOLECALCIFEROL
  10. CALCITRIOL. [Concomitant]
     Active Substance: CALCITRIOL
  11. OXYCONTIN [Concomitant]
     Active Substance: OXYCODONE HYDROCHLORIDE
  12. MAGNESIUM OXIDE. [Concomitant]
     Active Substance: MAGNESIUM OXIDE
  13. CITALOPRAM [Concomitant]
     Active Substance: CITALOPRAM HYDROBROMIDE
  14. ACTIPRAM [Concomitant]
  15. KEPPRA [Concomitant]
     Active Substance: LEVETIRACETAM
  16. POTASSIUM CHLORIDE. [Concomitant]
     Active Substance: POTASSIUM CHLORIDE
  17. TIZANIDINE. [Concomitant]
     Active Substance: TIZANIDINE
  18. TRAMADOL. [Concomitant]
     Active Substance: TRAMADOL

REACTIONS (1)
  - Seizure [Unknown]
